FAERS Safety Report 8841342 (Version 1)
Quarter: 2012Q4

REPORT INFORMATION
  Report Type: 
  Country: BR (occurrence: BR)
  Receive Date: 20121015
  Receipt Date: 20121015
  Transmission Date: 20130627
  Serious: Yes (Hospitalization, Other)
  Sender: FDA-Public Use
  Company Number: BR-PFIZER INC-2012252746

PATIENT
  Age: 59 Year
  Sex: Female
  Weight: 73 kg

DRUGS (7)
  1. CELEBRA [Suspect]
     Indication: MUSCULOSKELETAL PAIN
     Dosage: Two capsules of 200mg daily
     Route: 048
     Dates: start: 20051010, end: 201203
  2. FRONTAL [Concomitant]
     Indication: SLEEP DISORDER
     Dosage: 2 mg, 1x/day (at night)
     Dates: start: 2010
  3. ERGOTAMINE TARTRATE [Concomitant]
     Indication: MIGRAINE
     Dosage: One tablet daily, only when she had strong pains
     Dates: start: 2002
  4. ESTROGENS CONJUGATED [Concomitant]
     Indication: HORMONE LEVEL ABNORMAL
     Dosage: 625 mg, 1x/day, before sleeping
     Dates: start: 2002
  5. FLUOXETINE [Concomitant]
     Indication: ANXIETY
     Dosage: 20 mg, 1x/day
     Dates: start: 201204
  6. HYDROCHLOROTHIAZIDE [Concomitant]
     Indication: DIURETIC THERAPY
     Dosage: 25 mg, daily
     Dates: start: 2002
  7. TYLENOL [Concomitant]
     Indication: MUSCULOSKELETAL PAIN
     Dosage: One tablet of unspecified dosage every 6 hours
     Dates: start: 2005

REACTIONS (2)
  - Muscle atrophy [Unknown]
  - Articular calcification [Unknown]
